FAERS Safety Report 9527661 (Version 3)
Quarter: 2013Q4

REPORT INFORMATION
  Report Type: Spontaneous
  Country: US (occurrence: US)
  Receive Date: 20130917
  Receipt Date: 20131031
  Transmission Date: 20140711
  Serious: Yes (Hospitalization, Other)
  Sender: FDA-Public Use
  Company Number: US-CELGENEUS-163-21880-13083930

PATIENT
  Age: 48 Year
  Sex: Male
  Weight: 145.28 kg

DRUGS (18)
  1. REVLIMID [Suspect]
     Indication: PLASMA CELL MYELOMA
     Dosage: 25 MILLIGRAM
     Route: 048
     Dates: start: 20130812
  2. DEXAMETHASONE [Concomitant]
     Indication: PRODUCT USED FOR UNKNOWN INDICATION
     Route: 048
     Dates: start: 20130812
  3. DEXAMETHASONE [Concomitant]
     Route: 048
     Dates: start: 20130812
  4. ACYCLOVIR [Concomitant]
     Indication: PRODUCT USED FOR UNKNOWN INDICATION
     Dosage: 800 MILLIGRAM
     Route: 048
     Dates: start: 20130726
  5. OMEPRAZOLE [Concomitant]
     Indication: PRODUCT USED FOR UNKNOWN INDICATION
     Route: 065
  6. ALLOPURINOL [Concomitant]
     Indication: BLOOD URIC ACID INCREASED
     Dosage: 300 MILLIGRAM
     Route: 048
     Dates: start: 20130726
  7. LANSOPRAZOLE [Concomitant]
     Indication: PRODUCT USED FOR UNKNOWN INDICATION
     Dosage: 30 MILLIGRAM
     Route: 048
     Dates: start: 20130723
  8. VELCADE [Concomitant]
     Indication: PRODUCT USED FOR UNKNOWN INDICATION
     Route: 065
  9. FLUIDS [Concomitant]
     Indication: NEPHROLITHIASIS
     Route: 041
  10. PAIN MEDICATION [Concomitant]
     Indication: PAIN
     Route: 041
  11. PAIN MEDICATION [Concomitant]
     Route: 048
  12. STEROIDS [Concomitant]
     Indication: NERVOUS SYSTEM DISORDER
     Route: 065
     Dates: start: 20130923
  13. EMPIRIC ANTIBIOTICS [Concomitant]
     Indication: PRODUCT USED FOR UNKNOWN INDICATION
     Route: 065
  14. FLOMAX [Concomitant]
     Indication: PRODUCT USED FOR UNKNOWN INDICATION
     Dosage: .4 MILLIGRAM
     Route: 048
     Dates: start: 20130904
  15. PLATELETS [Concomitant]
     Indication: FULL BLOOD COUNT DECREASED
     Dosage: 6-PACK
     Route: 065
  16. ONDANSETRON HCL [Concomitant]
     Indication: NAUSEA
     Route: 048
     Dates: start: 20130726
  17. ONDANSETRON HCL [Concomitant]
     Indication: VOMITING
  18. OXYCODONE HCL [Concomitant]
     Indication: PAIN
     Dosage: 1-2 TABS
     Route: 048
     Dates: start: 20130723

REACTIONS (5)
  - Nephrolithiasis [Unknown]
  - Renal failure acute [Unknown]
  - Pancytopenia [Unknown]
  - Thrombocytopenia [Unknown]
  - Urinary tract infection [Unknown]
